FAERS Safety Report 5123404-0 (Version None)
Quarter: 2006Q4

REPORT INFORMATION
  Report Type: 
  Country: None (occurrence: None)
  Receive Date: 20061004
  Receipt Date: 20060928
  Transmission Date: 20070319
  Serious: Yes (Hospitalization)
  Sender: FDA-Public Use
  Company Number: NLWYE074229SEP06

PATIENT
  Sex: 0

DRUGS (1)
  1. EFFEXOR [Suspect]

REACTIONS (6)
  - CONFUSIONAL STATE [None]
  - HEART RATE INCREASED [None]
  - HYPERTENSION [None]
  - POST PROCEDURAL HAEMORRHAGE [None]
  - RESTLESSNESS [None]
  - SURGERY [None]
